FAERS Safety Report 7834986-X (Version None)
Quarter: 2011Q4

REPORT INFORMATION
  Report Type: 
  Country: None (occurrence: None)
  Receive Date: 20111020
  Receipt Date: 20111012
  Transmission Date: 20120403
  Serious: Yes (Congenital Anomaly, Other)
  Sender: FDA-Public Use
  Company Number: GER/UKI/11/0021549

PATIENT
  Sex: Female
  Weight: 1.87 kg

DRUGS (9)
  1. OMEPRAZOLE [Concomitant]
  2. FLUOXETINE HYDROCHLORIDE [Suspect]
     Indication: PRODUCT USED FOR UNKNOWN INDICATION
     Dosage: 20 MG, TRANSPLACENTAL, 40 MG, TRANSPLACENTAL
     Route: 064
  3. FLUOXETINE HYDROCHLORIDE [Suspect]
     Indication: PRODUCT USED FOR UNKNOWN INDICATION
     Dosage: 20 MG, TRANSPLACENTAL, 40 MG, TRANSPLACENTAL
     Route: 064
     Dates: start: 20110117, end: 20110401
  4. FLUOXETINE HYDROCHLORIDE [Suspect]
     Indication: PRODUCT USED FOR UNKNOWN INDICATION
     Dosage: 20 MG, TRANSPLACENTAL, 40 MG, TRANSPLACENTAL
     Route: 064
     Dates: start: 20110401
  5. PAROXETINE HCL [Concomitant]
  6. CYCLIZINE (CYCLIZINE) [Concomitant]
  7. CHLORPROMAZINE [Suspect]
     Indication: PRODUCT USED FOR UNKNOWN INDICATION
     Dosage: 25 MG, TRANSPLACENTAL, 50 MG, TRANSPLACENTAL
     Route: 064
  8. CHLORPROMAZINE [Suspect]
     Indication: PRODUCT USED FOR UNKNOWN INDICATION
     Dosage: 25 MG, TRANSPLACENTAL, 50 MG, TRANSPLACENTAL
     Route: 064
     Dates: start: 20101005, end: 20110501
  9. CHLORPROMAZINE [Suspect]
     Indication: PRODUCT USED FOR UNKNOWN INDICATION
     Dosage: 25 MG, TRANSPLACENTAL, 50 MG, TRANSPLACENTAL
     Route: 064
     Dates: start: 20110501

REACTIONS (3)
  - CLEFT PALATE [None]
  - MATERNAL DRUGS AFFECTING FOETUS [None]
  - MATERNAL ALCOHOL USE [None]
